FAERS Safety Report 9352944 (Version 1)
Quarter: 2013Q2

REPORT INFORMATION
  Report Type: Spontaneous
  Country: US (occurrence: US)
  Receive Date: 20130618
  Receipt Date: 20130618
  Transmission Date: 20140414
  Serious: Yes (Other)
  Sender: FDA-Public Use
  Company Number: US-SANOFI-AVENTIS-2011SA058424

PATIENT
  Age: 66 Year
  Sex: Female

DRUGS (3)
  1. LANTUS SOLOSTAR [Suspect]
     Indication: DIABETES MELLITUS
     Dosage: DOSE:154 UNIT(S)
     Route: 058
     Dates: start: 201201
  2. SOLOSTAR [Suspect]
     Indication: DIABETES MELLITUS
     Dates: start: 201201
  3. COUMADIN [Concomitant]

REACTIONS (3)
  - Carpal tunnel syndrome [Unknown]
  - Sciatica [Unknown]
  - Injection site haemorrhage [Unknown]
